FAERS Safety Report 17855863 (Version 1)
Quarter: 2020Q2

REPORT INFORMATION
  Report Type: Spontaneous
  Country: US (occurrence: US)
  Receive Date: 20200603
  Receipt Date: 20200603
  Transmission Date: 20200714
  Serious: No
  Sender: FDA-Public Use
  Company Number: US-TEVA-2020-US-1241956

PATIENT
  Sex: Female

DRUGS (3)
  1. CLONAZEPAM TEVA [Suspect]
     Active Substance: CLONAZEPAM
     Indication: ANXIETY
     Dosage: 1-1.5 MG / DAY
     Route: 065
     Dates: start: 202002
  2. CLONAZEPAM TEVA [Suspect]
     Active Substance: CLONAZEPAM
     Indication: MUSCLE SPASMS
  3. CLONAZEPAM TEVA [Suspect]
     Active Substance: CLONAZEPAM
     Indication: PALPITATIONS
     Dosage: 2 MILLIGRAM DAILY;
     Route: 065

REACTIONS (16)
  - Ventricular extrasystoles [Unknown]
  - Balance disorder [Unknown]
  - Poor quality sleep [Unknown]
  - Withdrawal syndrome [Unknown]
  - Dizziness [Unknown]
  - Drug ineffective [Unknown]
  - Panic attack [Unknown]
  - Heart rate decreased [Unknown]
  - Fatigue [Unknown]
  - Nausea [Unknown]
  - Headache [Unknown]
  - Dyspnoea [Unknown]
  - Muscle twitching [Unknown]
  - Formication [Unknown]
  - Energy increased [Unknown]
  - Hot flush [Unknown]
